FAERS Safety Report 7767332-0 (Version None)
Quarter: 2011Q3

REPORT INFORMATION
  Report Type: 
  Country: None (occurrence: None)
  Receive Date: 20110922
  Receipt Date: 20110324
  Transmission Date: 20111222
  Serious: No
  Sender: FDA-Public Use
  Company Number: US-ASTRAZENECA-2011SE16716

PATIENT
  Age: 30 Year
  Sex: Female
  Weight: 64.4 kg

DRUGS (4)
  1. CYMBALTA [Concomitant]
     Indication: BIPOLAR DISORDER
  2. KLONOPIN [Concomitant]
     Indication: BIPOLAR DISORDER
  3. PROZAC [Concomitant]
     Indication: BIPOLAR DISORDER
  4. SEROQUEL [Suspect]
     Indication: BIPOLAR DISORDER
     Route: 048
     Dates: start: 20050101, end: 20101101

REACTIONS (3)
  - INSOMNIA [None]
  - FEELING ABNORMAL [None]
  - DRUG DOSE OMISSION [None]
